FAERS Safety Report 5045062-6 (Version None)
Quarter: 2006Q3

REPORT INFORMATION
  Report Type: 
  Country: None (occurrence: None)
  Receive Date: 20060707
  Receipt Date: 20060628
  Transmission Date: 20061208
  Serious: Yes (Other)
  Sender: FDA-Public Use
  Company Number: CH-JNJFOC-20060604644

PATIENT
  Sex: Male

DRUGS (1)
  1. SPORANOX [Suspect]
     Indication: CUTANEOUS LEISHMANIASIS
     Route: 048
     Dates: start: 20050310, end: 20050331

REACTIONS (3)
  - ARTHROPATHY [None]
  - HEADACHE [None]
  - PARAESTHESIA [None]
